FAERS Safety Report 5493521-4 (Version None)
Quarter: 2007Q4

REPORT INFORMATION
  Report Type: 
  Country: None (occurrence: None)
  Receive Date: 20071023
  Receipt Date: 20071010
  Transmission Date: 20080405
  Serious: Yes (Hospitalization)
  Sender: FDA-Public Use
  Company Number: US-SHR-US-2006-028797

PATIENT
  Age: 44 Year
  Sex: Female
  Weight: 52.608 kg

DRUGS (6)
  1. BETASERON [Suspect]
     Indication: RELAPSING-REMITTING MULTIPLE SCLEROSIS
     Dosage: 8 MIU, EVERY 2D
     Route: 058
     Dates: start: 20030201, end: 20060717
  2. BETASERON [Suspect]
     Dosage: 8 MIU, EVERY 2D
     Route: 058
     Dates: start: 20020201
  3. BACLOFEN [Concomitant]
     Route: 037
  4. ESTRADIOL [Concomitant]
     Dosage: 1 MG, 2X/DAY
     Route: 048
  5. LOVASTATIN [Concomitant]
  6. DETROL [Concomitant]

REACTIONS (1)
  - INJECTION SITE CELLULITIS [None]
